FAERS Safety Report 17195387 (Version 2)
Quarter: 2019Q4

REPORT INFORMATION
  Report Type: Spontaneous
  Country: SE (occurrence: SE)
  Receive Date: 20191224
  Receipt Date: 20191225
  Transmission Date: 20200122
  Serious: Yes (Hospitalization)
  Sender: FDA-Public Use
  Company Number: SE-TEVA-2019-SE-1155898

PATIENT
  Sex: Female
  Weight: 57 kg

DRUGS (4)
  1. STESOLID [Suspect]
     Active Substance: DIAZEPAM
     Dosage: 70 MG
     Route: 048
     Dates: start: 20180623, end: 20180623
  2. IPREN [Suspect]
     Active Substance: IBUPROFEN
     Dosage: 2 MAPS
     Route: 048
     Dates: start: 20180623, end: 20180623
  3. ALVEDON 500 MG FILMDRAGERAD TABLETT [Suspect]
     Active Substance: ACETAMINOPHEN
     Dosage: 2 MAPS
     Route: 048
     Dates: start: 20180623, end: 20180623
  4. PROPAVAN [Suspect]
     Active Substance: PROPIOMAZINE
     Dosage: OK AMOUNT
     Route: 048
     Dates: start: 20180623, end: 20180623

REACTIONS (3)
  - Intentional overdose [Unknown]
  - Depressed level of consciousness [Unknown]
  - Intentional self-injury [Unknown]

NARRATIVE: CASE EVENT DATE: 20180623
